FAERS Safety Report 10807423 (Version 1)
Quarter: 2015Q1

REPORT INFORMATION
  Report Type: Report from Study
  Country: US (occurrence: US)
  Receive Date: 20150217
  Receipt Date: 20150217
  Transmission Date: 20150721
  Serious: No
  Sender: FDA-Public Use
  Company Number: US-ABBVIE-14K-163-1253622-00

PATIENT
  Age: 26 Year
  Sex: Male

DRUGS (5)
  1. HUMIRA [Suspect]
     Active Substance: ADALIMUMAB
     Dates: start: 20140614, end: 20140614
  2. HUMIRA [Suspect]
     Active Substance: ADALIMUMAB
     Dates: start: 20140608, end: 20140608
  3. HUMIRA [Suspect]
     Active Substance: ADALIMUMAB
     Indication: COLITIS ULCERATIVE
     Dates: start: 20140525, end: 20140525
  4. HYDROCODONE [Concomitant]
     Active Substance: HYDROCODONE
     Indication: PAIN
     Dosage: LOWEST DOSE
  5. HUMIRA [Suspect]
     Active Substance: ADALIMUMAB
     Dates: start: 20140624

REACTIONS (6)
  - Dehydration [Unknown]
  - Drug dose omission [Unknown]
  - Drug ineffective [Not Recovered/Not Resolved]
  - Device issue [Unknown]
  - Haematochezia [Unknown]
  - Dizziness [Unknown]

NARRATIVE: CASE EVENT DATE: 20140525
